FAERS Safety Report 16883483 (Version 1)
Quarter: 2019Q4

REPORT INFORMATION
  Report Type: Spontaneous
  Country: ES (occurrence: ES)
  Receive Date: 20191004
  Receipt Date: 20191004
  Transmission Date: 20200122
  Serious: Yes (Life-Threatening, Other)
  Sender: FDA-Public Use
  Company Number: ES-TEVA-2019-ES-1116985

PATIENT
  Age: 61 Year
  Sex: Female

DRUGS (3)
  1. NAPROXENO (2002A) [Suspect]
     Active Substance: NAPROXEN
     Indication: MYALGIA
     Dosage: 1 DF
     Route: 048
     Dates: start: 20190822, end: 20190822
  2. CARDYL 20 MG COMPRIMIDOS RECUBIERTOS CON PELICULA, 28 COMPRIMIDOS [Concomitant]
     Route: 048
  3. IXIA PLUS 40 MG/12,5 MG COMPRIMIDOS RECUBIERTOS CON PELICULA [Concomitant]
     Dosage: 40 MG / 12.5 MG
     Route: 048

REACTIONS (1)
  - Anaphylactic reaction [Recovered/Resolved]

NARRATIVE: CASE EVENT DATE: 20190822
